FAERS Safety Report 4877533-7 (Version None)
Quarter: 2006Q1

REPORT INFORMATION
  Report Type: 
  Country: None (occurrence: None)
  Receive Date: 20060109
  Receipt Date: 20051230
  Transmission Date: 20060701
  Serious: Yes (Life-Threatening)
  Sender: FDA-Public Use
  Company Number: 20050043USST

PATIENT
  Age: 62 Year
  Sex: Male

DRUGS (4)
  1. PROCARBAZINE HYDROCHLORIDE CAPSULES [Suspect]
  2. CYCLOPHOSPHAMIDE [Suspect]
  3. VINCRISTINE SULFATE [Suspect]
  4. PREDNISONE [Suspect]

REACTIONS (1)
  - CARDIAC FAILURE [None]
